FAERS Safety Report 12770201 (Version 6)
Quarter: 2018Q4

REPORT INFORMATION
  Report Type: Spontaneous
  Country: US (occurrence: US)
  Receive Date: 20160922
  Receipt Date: 20181024
  Transmission Date: 20190204
  Serious: Yes (Hospitalization, Other)
  Sender: FDA-Public Use
  Company Number: US-PFIZER INC-2016440575

PATIENT
  Age: 73 Year
  Sex: Female

DRUGS (1)
  1. XELJANZ XR [Suspect]
     Active Substance: TOFACITINIB CITRATE
     Dosage: 11 MG, UNK
     Dates: end: 201807

REACTIONS (6)
  - Dyspnoea [Unknown]
  - Accident [Unknown]
  - Wound [Unknown]
  - Wound infection [Unknown]
  - Pain [Unknown]
  - Limb injury [Unknown]

NARRATIVE: CASE EVENT DATE: 201807
